FAERS Safety Report 7465650-7 (Version None)
Quarter: 2011Q2

REPORT INFORMATION
  Report Type: 
  Country: None (occurrence: None)
  Receive Date: 20110509
  Receipt Date: 20110126
  Transmission Date: 20111010
  Serious: Yes (Other)
  Sender: FDA-Public Use
  Company Number: A0903383B

PATIENT
  Age: 61 Year
  Sex: Female

DRUGS (10)
  1. ZOMETA [Concomitant]
  2. OXYCODONE/ACETAMINOPHEN [Concomitant]
  3. AMBIEN CR [Concomitant]
  4. ALPRAZOLAM [Concomitant]
  5. PROMACTA [Suspect]
     Indication: THROMBOCYTOPENIA
     Dosage: 75MG PER DAY
     Route: 048
     Dates: start: 20100826
  6. VITAMINS [Concomitant]
  7. SENNA UNSPECIFIED [Concomitant]
  8. LYRICA [Concomitant]
  9. NEXIUM [Concomitant]
  10. LEVOXYL [Concomitant]

REACTIONS (3)
  - ONYCHOMYCOSIS [None]
  - VISUAL ACUITY REDUCED [None]
  - ALOPECIA [None]
